FAERS Safety Report 10480276 (Version 2)
Quarter: 2014Q4

REPORT INFORMATION
  Report Type: Spontaneous
  Country: US (occurrence: US)
  Receive Date: 20140929
  Receipt Date: 20141007
  Transmission Date: 20150528
  Serious: Yes (Death)
  Sender: FDA-Public Use
  Company Number: US-JNJFOC-20140921171

PATIENT
  Age: 45 Year
  Sex: Female
  Weight: 56.7 kg

DRUGS (6)
  1. TEA [Concomitant]
     Active Substance: TEA LEAF
     Indication: NUTRITIONAL SUPPLEMENTATION
     Route: 065
  2. HYDROXYCUT [Concomitant]
     Active Substance: HERBALS
     Indication: NUTRITIONAL SUPPLEMENTATION
     Route: 065
  3. BIRTH CONTROL PILLS [Concomitant]
     Active Substance: UNSPECIFIED INGREDIENT
     Indication: PRODUCT USED FOR UNKNOWN INDICATION
     Route: 065
  4. TYLENOL EXTRA STRENGTH [Suspect]
     Active Substance: ACETAMINOPHEN
     Indication: HEADACHE
     Route: 048
  5. ALL OTHER THERAPEUTIC PRODUCT [Concomitant]
     Active Substance: UNSPECIFIED INGREDIENT
     Indication: NUTRITIONAL SUPPLEMENTATION
     Route: 065
  6. WEIGHT LOSS PREPARATION [Suspect]
     Active Substance: UNSPECIFIED INGREDIENT
     Indication: WEIGHT DECREASED
     Route: 065
     Dates: start: 20130731

REACTIONS (1)
  - Mitral valve prolapse [Fatal]
